FAERS Safety Report 8134175-8 (Version None)
Quarter: 2012Q1

REPORT INFORMATION
  Report Type: 
  Country: None (occurrence: None)
  Receive Date: 20120207
  Receipt Date: 20120130
  Transmission Date: 20120608
  Serious: No
  Sender: FDA-Public Use
  Company Number: 2012SP004754

PATIENT
  Age: 48 Year
  Sex: Male

DRUGS (5)
  1. MIRTAZAPINE [Suspect]
     Indication: DEPRESSION
     Dosage: 7.5 MG;QD;PO
     Route: 048
     Dates: start: 20111003
  2. PAXIL [Suspect]
     Indication: DEPRESSION
     Dosage: 20 MG;QD;PO
     Route: 048
     Dates: start: 20111003
  3. SEDEKOPAN (ETIZOLAM) [Suspect]
     Indication: DEPRESSION
     Dosage: 1 MG;QD;PO
     Route: 048
     Dates: start: 20111003
  4. DOGMATYL (SULPIRIDE) [Suspect]
     Indication: DEPRESSION
     Dosage: 50 MG;QD;PO
     Route: 048
     Dates: start: 20111003
  5. APLACE (TROXIPIDE) [Suspect]
     Indication: GASTRITIS
     Dosage: 0.5 GM;PO
     Route: 048
     Dates: start: 20111003

REACTIONS (2)
  - LIVER DISORDER [None]
  - RHABDOMYOLYSIS [None]
